FAERS Safety Report 12372593 (Version 6)
Quarter: 2020Q1

REPORT INFORMATION
  Report Type: Spontaneous
  Country: US (occurrence: US)
  Receive Date: 20160516
  Receipt Date: 20200122
  Transmission Date: 20200409
  Serious: No
  Sender: FDA-Public Use
  Company Number: US-PFIZER INC-2015017791

PATIENT
  Age: 82 Year
  Sex: Female

DRUGS (13)
  1. CELEBREX [Suspect]
     Active Substance: CELECOXIB
     Indication: GAIT DISTURBANCE
     Dosage: 100 MG, 1X/DAY
     Route: 048
     Dates: start: 20160920
  2. LEVOTHYROXINE. [Concomitant]
     Active Substance: LEVOTHYROXINE
     Dosage: 50 UG, 1X/DAY
     Route: 048
  3. CELEBREX [Suspect]
     Active Substance: CELECOXIB
     Indication: BALANCE DISORDER
  4. CLORAZEPATE DIPOTASSIUM. [Concomitant]
     Active Substance: CLORAZEPATE DIPOTASSIUM
     Dosage: 7.5 MG, 1X/DAY
     Route: 048
  5. ALENDRONATE [Concomitant]
     Active Substance: ALENDRONATE SODIUM
     Dosage: 70 MG, WEEKLY (IN THE MORNING)
     Route: 048
  6. CELEBREX [Suspect]
     Active Substance: CELECOXIB
     Indication: ARTHRALGIA
     Dosage: 100 MG, 1X/DAY
     Route: 048
     Dates: start: 20140814
  7. GATIFLOXACIN. [Concomitant]
     Active Substance: GATIFLOXACIN
     Dosage: 1 GTT, 2X/DAY (1 DROP IN RIGHT EYE, 2X/DAY WHILE AWAKE ON DAYS 2 THROUGH 7)
     Route: 047
  8. SYSTANE BALANCE [Concomitant]
     Active Substance: PROPYLENE GLYCOL
     Dosage: 0.6 %, UNK
  9. LOTEMAX [Concomitant]
     Active Substance: LOTEPREDNOL ETABONATE
     Dosage: 1 GTT, 4X/DAY (1 DROP TO AFFECTED EYE, 4X/DAY)
     Route: 047
  10. OXYBUTYNIN HCL [Concomitant]
     Active Substance: OXYBUTYNIN
     Dosage: 5 MG, 1X/DAY (QHS)
     Route: 048
  11. SENNA [Concomitant]
     Active Substance: SENNA LEAF\SENNOSIDES\SENNOSIDES A AND B
     Indication: CONSTIPATION
     Dosage: 17.2 MG, AS NEEDED (8.6 MG TAKE 2 TABLET ONCE DAILY)
     Route: 048
     Dates: start: 20141231
  12. NORCO [Concomitant]
     Active Substance: ACETAMINOPHEN\HYDROCODONE BITARTRATE
     Indication: PAIN
     Dosage: 1 DF, AS NEEDED (EVERY 4-6 HOURS)
     Route: 048
     Dates: start: 20150107
  13. REFRESH CLASSIC LUCRICANT EYE DROPS [Concomitant]
     Dosage: 1.4-0.6%, AS DIRECTED
     Route: 047

REACTIONS (1)
  - Hypoacusis [Unknown]
